FAERS Safety Report 5309426-5 (Version None)
Quarter: 2007Q2

REPORT INFORMATION
  Report Type: 
  Country: None (occurrence: None)
  Receive Date: 20070427
  Receipt Date: 20070417
  Transmission Date: 20071010
  Serious: Yes (Other)
  Sender: FDA-Public Use
  Company Number: GB-NOVOPROD-260889

PATIENT
  Sex: Male

DRUGS (6)
  1. NOVOMIX 30 [Suspect]
     Indication: DIABETES MELLITUS
     Route: 058
     Dates: start: 20070119
  2. NOVORAPID [Suspect]
     Dosage: 21 IU, QD
     Route: 058
     Dates: start: 20070216
  3. LANTUS [Suspect]
     Dosage: 30 IU, QD
     Route: 058
     Dates: start: 20070216
  4. HUMULIN M3                         /01466201/ [Concomitant]
  5. DIGOXIN [Concomitant]
  6. ATENOLOL [Concomitant]
     Dosage: 25 MG, QD
     Route: 048

REACTIONS (4)
  - BLOOD GLUCOSE ABNORMAL [None]
  - DYSPNOEA [None]
  - INSOMNIA [None]
  - TACHYCARDIA [None]
